FAERS Safety Report 7794848-3 (Version None)
Quarter: 2011Q4

REPORT INFORMATION
  Report Type: 
  Country: None (occurrence: None)
  Receive Date: 20111004
  Receipt Date: 20110920
  Transmission Date: 20120403
  Serious: Yes (Hospitalization)
  Sender: FDA-Public Use
  Company Number: PHHY2011EC85981

PATIENT
  Sex: Female

DRUGS (2)
  1. PHENYTOIN SODIUM CAP [Concomitant]
  2. DIOVAN [Suspect]
     Indication: HYPERTENSION
     Dosage: 1 DF, DAILY
     Route: 048
     Dates: start: 20000201

REACTIONS (1)
  - PAIN IN EXTREMITY [None]
